FAERS Safety Report 18146266 (Version 1)
Quarter: 2020Q3

REPORT INFORMATION
  Report Type: Spontaneous
  Country: TW (occurrence: TW)
  Receive Date: 20200813
  Receipt Date: 20200813
  Transmission Date: 20201103
  Serious: Yes (Hospitalization)
  Sender: FDA-Public Use
  Company Number: TW-ASTRAZENECA-2020SE98962

PATIENT
  Age: 76 Year
  Sex: Female

DRUGS (7)
  1. CRESTOR [Suspect]
     Active Substance: ROSUVASTATIN CALCIUM
     Dosage: FOR OVER 5 YEARS
     Route: 048
  2. METFORMIN [Suspect]
     Active Substance: METFORMIN HYDROCHLORIDE
     Dosage: 500.0MG UNKNOWN
     Route: 065
  3. L?THYROXINE [Suspect]
     Active Substance: LEVOTHYROXINE
     Dosage: 0.05MG UNKNOWN
     Route: 065
  4. ACETYLSALICYLIC [Suspect]
     Active Substance: ASPIRIN
     Dosage: 81.0MG UNKNOWN
     Route: 065
  5. RISEDRONATE [Suspect]
     Active Substance: RISEDRONATE SODIUM
     Route: 065
  6. BISOPROLOL [Concomitant]
     Active Substance: BISOPROLOL
     Dosage: 1.25MG UNKNOWN
     Route: 065
  7. CANAGLIOZIN [CANAGLIFLOZIN] [Suspect]
     Active Substance: CANAGLIFLOZIN
     Dosage: 100.0MG UNKNOWN
     Route: 065

REACTIONS (5)
  - Hepatocellular injury [Unknown]
  - Pain in extremity [Recovering/Resolving]
  - Rhabdomyolysis [Unknown]
  - Toxicity to various agents [Unknown]
  - Muscular weakness [Recovering/Resolving]
